FAERS Safety Report 26122733 (Version 2)
Quarter: 2025Q4

REPORT INFORMATION
  Report Type: Spontaneous
  Country: EU (occurrence: EU)
  Receive Date: 20251204
  Receipt Date: 20251216
  Transmission Date: 20260118
  Serious: Yes (Other)
  Sender: INCYTE
  Company Number: EU-MLMSERVICE-20251114-PI713216-00232-1

PATIENT
  Age: 17 Year

DRUGS (3)
  1. RUXOLITINIB [Suspect]
     Active Substance: RUXOLITINIB
     Indication: STING-associated vasculopathy with onset in infancy
     Dosage: UNK
     Route: 065
  2. MYCOPHENOLATE MOFETIL [Suspect]
     Active Substance: MYCOPHENOLATE MOFETIL
     Indication: STING-associated vasculopathy with onset in infancy
     Dosage: UNK
     Route: 065
  3. OXYGEN [Concomitant]
     Active Substance: OXYGEN
     Indication: Chronic respiratory failure
     Dosage: UNK
     Route: 065

REACTIONS (1)
  - Bronchopulmonary aspergillosis [Unknown]
